FAERS Safety Report 10447372 (Version 1)
Quarter: 2014Q3

REPORT INFORMATION
  Report Type: Spontaneous
  Country: US (occurrence: US)
  Receive Date: 20140911
  Receipt Date: 20140911
  Transmission Date: 20150326
  Serious: Yes (Hospitalization)
  Sender: FDA-Public Use
  Company Number: US-BEH-2013037319

PATIENT
  Age: 61 Year
  Sex: Female
  Weight: 63 kg

DRUGS (23)
  1. LIDOCAINE. [Concomitant]
     Active Substance: LIDOCAINE
  2. ISOSORBIDE [Concomitant]
     Active Substance: ISOSORBIDE
  3. ALL OTHER NON-THERAPEUTIC PRODUCTS [Concomitant]
     Active Substance: UNSPECIFIED INGREDIENT
  4. OXYGEN. [Concomitant]
     Active Substance: OXYGEN
  5. SINGULAIR [Concomitant]
     Active Substance: MONTELUKAST SODIUM
  6. SODIUM CHLORIDE. [Concomitant]
     Active Substance: SODIUM CHLORIDE
  7. PROZAC [Concomitant]
     Active Substance: FLUOXETINE HYDROCHLORIDE
  8. ZEMAIRA [Suspect]
     Active Substance: .ALPHA.1-PROTEINASE INHIBITOR HUMAN
     Indication: ALPHA-1 ANTI-TRYPSIN DEFICIENCY
     Dosage: 983 MG VIAL
     Route: 042
     Dates: start: 20130730, end: 20130730
  9. BACTRIM [Concomitant]
     Active Substance: SULFAMETHOXAZOLE\TRIMETHOPRIM
  10. TYLENOL WITH CODEINE [Concomitant]
     Active Substance: ACETAMINOPHEN\CODEINE PHOSPHATE
  11. ALBUTEROL. [Concomitant]
     Active Substance: ALBUTEROL
  12. PULMICORT TURBUHALER [Concomitant]
     Active Substance: BUDESONIDE
  13. DIPHENHYDRAMINE [Concomitant]
     Active Substance: DIPHENHYDRAMINE
  14. EPIPEN [Concomitant]
     Active Substance: EPINEPHRINE
  15. LMX [Concomitant]
     Active Substance: LIDOCAINE
  16. DOXYCYCLINE. [Concomitant]
     Active Substance: DOXYCYCLINE
  17. MIRAPEX [Concomitant]
     Active Substance: PRAMIPEXOLE DIHYDROCHLORIDE
  18. POTASSIUM CHLORIDE. [Concomitant]
     Active Substance: POTASSIUM CHLORIDE
  19. NEXIUM [Concomitant]
     Active Substance: ESOMEPRAZOLE MAGNESIUM
  20. ALL OTHER THERAPEUTIC PRODUCTS [Concomitant]
     Active Substance: UNSPECIFIED INGREDIENT
  21. ZEMAIRA [Suspect]
     Active Substance: .ALPHA.1-PROTEINASE INHIBITOR HUMAN
     Indication: EMPHYSEMA
     Dosage: 983 MG VIAL
     Route: 042
     Dates: start: 20130730, end: 20130730
  22. PREDNISONE. [Concomitant]
     Active Substance: PREDNISONE
  23. DALIRESP [Concomitant]
     Active Substance: ROFLUMILAST

REACTIONS (1)
  - Dyspnoea [Unknown]

NARRATIVE: CASE EVENT DATE: 20130802
